FAERS Safety Report 5887467-7 (Version None)
Quarter: 2008Q3

REPORT INFORMATION
  Report Type: 
  Country: None (occurrence: None)
  Receive Date: 20080917
  Receipt Date: 20080917
  Transmission Date: 20090109
  Serious: Yes (Life-Threatening)
  Sender: FDA-Public Use
  Company Number: None

PATIENT
  Sex: Female
  Weight: 65.9 kg

DRUGS (2)
  1. CLINDAMYCIN HCL [Suspect]
     Dosage: ONE CAPSULE EVERY 6 HOURS ORALLY
     Route: 048
     Dates: start: 20080807, end: 20080807
  2. WELLBUTRIN XL [Concomitant]

REACTIONS (8)
  - ANGIOEDEMA [None]
  - DYSPNOEA [None]
  - HYPOAESTHESIA [None]
  - INFLAMMATION [None]
  - OESOPHAGEAL OEDEMA [None]
  - PARAESTHESIA [None]
  - PRURITUS [None]
  - RASH ERYTHEMATOUS [None]
